FAERS Safety Report 19978591 (Version 2)
Quarter: 2021Q4

REPORT INFORMATION
  Report Type: Spontaneous
  Country: RU (occurrence: RU)
  Receive Date: 20211020
  Receipt Date: 20211117
  Transmission Date: 20220303
  Serious: Yes (Other)
  Sender: FDA-Public Use
  Company Number: RU-GLAXOSMITHKLINE-RU2021EME205699

PATIENT
  Sex: Male

DRUGS (5)
  1. FLUTICASONE FUROATE [Suspect]
     Active Substance: FLUTICASONE FUROATE
     Indication: Vasomotor rhinitis
     Dosage: UNK, QD
     Dates: start: 2018
  2. FLUTICASONE FUROATE [Suspect]
     Active Substance: FLUTICASONE FUROATE
     Dosage: UNK
     Dates: start: 20210912, end: 20211014
  3. PANTOPRAZOLE SODIUM [Concomitant]
     Active Substance: PANTOPRAZOLE SODIUM
     Indication: Product used for unknown indication
     Dosage: 20 MG, QD (FOR COUPLE OF YEARS)
  4. IBUPROFEN [Concomitant]
     Active Substance: IBUPROFEN
     Indication: Back pain
     Dosage: 200 MG ()3-7 CAPSULE PER WEEK, SOMETIMES TWICE A DAY NOW RATHER 5/WEEK
  5. PHENAZEPAM [Concomitant]
     Active Substance: PHENAZEPAM
     Indication: Sleep disorder
     Dosage: 0.5 MG (BEFORE GOING TO BED)

REACTIONS (12)
  - Thrombosis [Recovered/Resolved]
  - Blood pressure decreased [Recovering/Resolving]
  - Nasal dryness [Recovering/Resolving]
  - Cough [Unknown]
  - Nasal discomfort [Unknown]
  - Coronavirus infection [Unknown]
  - Dizziness [Unknown]
  - Cardiovascular disorder [Unknown]
  - Increased viscosity of upper respiratory secretion [Unknown]
  - Oropharyngeal pain [Unknown]
  - Heart rate increased [Unknown]
  - Off label use [Unknown]

NARRATIVE: CASE EVENT DATE: 20210501
